FAERS Safety Report 23370958 (Version 1)
Quarter: 2024Q1

REPORT INFORMATION
  Report Type: Spontaneous
  Country: US (occurrence: US)
  Receive Date: 20240105
  Receipt Date: 20240105
  Transmission Date: 20240410
  Serious: Yes (Hospitalization)
  Sender: FDA-Public Use
  Company Number: US-SA-SAC20240104001167

PATIENT
  Sex: Female
  Weight: 83.9 kg

DRUGS (18)
  1. DUPIXENT [Suspect]
     Active Substance: DUPILUMAB
     Indication: Asthma
     Dosage: 200 MG, QOW
     Route: 058
  2. MOUNJARO [Suspect]
     Active Substance: TIRZEPATIDE
  3. METFORMIN [Concomitant]
     Active Substance: METFORMIN HYDROCHLORIDE
  4. NYSTATIN [Concomitant]
     Active Substance: NYSTATIN
  5. HUMALOG [Concomitant]
     Active Substance: INSULIN LISPRO
  6. SERTRALINE [Concomitant]
     Active Substance: SERTRALINE HYDROCHLORIDE
  7. DICLOFENAC [Concomitant]
     Active Substance: DICLOFENAC
  8. TIZANIDINE [Concomitant]
     Active Substance: TIZANIDINE
  9. KETOROLAC [Concomitant]
     Active Substance: KETOROLAC TROMETHAMINE
  10. TOUJEO [Concomitant]
     Active Substance: INSULIN GLARGINE
  11. MONTELUKAST [Concomitant]
     Active Substance: MONTELUKAST SODIUM
  12. DILTIAZEM [Concomitant]
     Active Substance: DILTIAZEM
  13. COLESEVELAM [Concomitant]
     Active Substance: COLESEVELAM
  14. ATORVASTATIN [Concomitant]
     Active Substance: ATORVASTATIN
  15. FAMOTIDINE [Concomitant]
     Active Substance: FAMOTIDINE
  16. ALBUTEROL SULFATE [Concomitant]
     Active Substance: ALBUTEROL SULFATE
  17. NAPROXEN [Concomitant]
     Active Substance: NAPROXEN
  18. TRULICITY [Concomitant]
     Active Substance: DULAGLUTIDE

REACTIONS (2)
  - Swelling [Unknown]
  - Pruritus [Unknown]
